FAERS Safety Report 5078194-7 (Version None)
Quarter: 2006Q3

REPORT INFORMATION
  Report Type: 
  Country: None (occurrence: None)
  Receive Date: 20060808
  Receipt Date: 20060721
  Transmission Date: 20061208
  Serious: Yes (Hospitalization)
  Sender: FDA-Public Use
  Company Number: DE200607003902

PATIENT
  Age: 67 Year
  Sex: Female

DRUGS (1)
  1. CYMBALTA [Suspect]
     Indication: ANXIETY
     Dosage: 30 MG, EACH EVENING, ORAL
     Route: 048
     Dates: start: 20060710, end: 20060715

REACTIONS (4)
  - AGITATION [None]
  - MAJOR DEPRESSION [None]
  - PANIC ATTACK [None]
  - RESTLESSNESS [None]
